FAERS Safety Report 7675701-2 (Version None)
Quarter: 2011Q3

REPORT INFORMATION
  Report Type: 
  Country: None (occurrence: None)
  Receive Date: 20110810
  Receipt Date: 20110801
  Transmission Date: 20111222
  Serious: Yes (Hospitalization)
  Sender: FDA-Public Use
  Company Number: FR-ASTRAZENECA-2011SE46379

PATIENT
  Age: 73 Year
  Sex: Male

DRUGS (7)
  1. CRESTOR [Suspect]
     Route: 048
     Dates: start: 20110607, end: 20110617
  2. DUOPLAVIN [Suspect]
     Route: 048
     Dates: start: 20110607
  3. TRAMADOL HCL [Suspect]
     Route: 048
     Dates: start: 20110607, end: 20110617
  4. CLOPIDOGREL BASE [Suspect]
     Route: 048
     Dates: start: 20110607
  5. RAMIPRIL [Suspect]
     Route: 048
     Dates: start: 20110607
  6. CRESTOR [Suspect]
     Route: 048
     Dates: start: 20110622
  7. BISOPROLOL FUMARATE [Suspect]
     Route: 048
     Dates: start: 20110607

REACTIONS (1)
  - CHOLESTASIS [None]
